FAERS Safety Report 19699796 (Version 1)
Quarter: 2021Q3

REPORT INFORMATION
  Report Type: Spontaneous
  Country: CN (occurrence: CN)
  Receive Date: 20210813
  Receipt Date: 20210813
  Transmission Date: 20211014
  Serious: Yes (Other)
  Sender: FDA-Public Use
  Company Number: CN-SUN PHARMACEUTICAL INDUSTRIES LTD-2021R1-307387

PATIENT
  Age: 54 Year
  Sex: Female

DRUGS (2)
  1. GEMCITABINE. [Suspect]
     Active Substance: GEMCITABINE
     Indication: CHEMOTHERAPY
     Dosage: 1000 MILLIGRAM/SQ. METER ON D1,8, Q21D
     Route: 065
  2. SINTILIMAB. [Suspect]
     Active Substance: SINTILIMAB
     Indication: IMMUNISATION
     Dosage: UNK
     Route: 065

REACTIONS (2)
  - Therapy partial responder [Unknown]
  - Thrombocytopenia [Unknown]
